FAERS Safety Report 25578542 (Version 4)
Quarter: 2025Q4

REPORT INFORMATION
  Report Type: Spontaneous
  Country: US (occurrence: US)
  Receive Date: 20250718
  Receipt Date: 20251224
  Transmission Date: 20260117
  Serious: Yes (Other)
  Sender: PURDUE
  Company Number: US-PURDUE PHARMA-USA-2025-0319008

PATIENT
  Age: 45 Year
  Sex: Female
  Weight: 56.69 kg

DRUGS (9)
  1. OXYCONTIN [Suspect]
     Active Substance: OXYCODONE HYDROCHLORIDE
     Indication: Pain
     Dosage: UNK
     Route: 048
  2. MORPHINE SULFATE [Suspect]
     Active Substance: MORPHINE SULFATE
     Indication: Product used for unknown indication
     Dosage: UNK
     Route: 065
  3. OXYCODONE HYDROCHLORIDE [Suspect]
     Active Substance: OXYCODONE HYDROCHLORIDE
     Indication: Product used for unknown indication
     Dosage: UNK
     Route: 065
  4. TUKYSA [Suspect]
     Active Substance: TUCATINIB
     Indication: Product used for unknown indication
     Dosage: 300 MILLIGRAM, TWICE DAILY
     Route: 048
     Dates: start: 202503
  5. TUKYSA [Suspect]
     Active Substance: TUCATINIB
     Dosage: 150 MILLIGRAM, 4 TIMES DAILY
     Route: 048
     Dates: start: 202503
  6. TUKYSA [Suspect]
     Active Substance: TUCATINIB
     Dosage: 300 MILLIGRAM, TWICE DAILY
     Route: 048
     Dates: start: 20250408
  7. TUKYSA [Suspect]
     Active Substance: TUCATINIB
     Dosage: 150 MILLIGRAM, 4 TIMES DAILY
     Route: 048
     Dates: start: 20250408
  8. CAPECITABINE [Suspect]
     Active Substance: CAPECITABINE
     Indication: Product used for unknown indication
     Dosage: UNK, 2 IN MORNING AND 3 AT NIGHT
     Route: 065
  9. HERCEPTIN [Suspect]
     Active Substance: TRASTUZUMAB
     Indication: Product used for unknown indication
     Dosage: UNK
     Route: 065
     Dates: start: 20250627

REACTIONS (16)
  - Road traffic accident [Unknown]
  - Impaired driving ability [Unknown]
  - Influenza like illness [Not Recovered/Not Resolved]
  - Somnolence [Recovering/Resolving]
  - Palmar-plantar erythrodysaesthesia syndrome [Not Recovered/Not Resolved]
  - Burning sensation [Not Recovered/Not Resolved]
  - Pain in extremity [Not Recovered/Not Resolved]
  - Influenza [Not Recovered/Not Resolved]
  - Red blood cell count decreased [Unknown]
  - Pain [Unknown]
  - Asthenia [Unknown]
  - Drug withdrawal syndrome [Unknown]
  - Product dose omission issue [Unknown]
  - Product availability issue [Unknown]
  - Emotional distress [Unknown]
  - Laboratory test abnormal [Unknown]

NARRATIVE: CASE EVENT DATE: 20250624
